FAERS Safety Report 16462169 (Version 1)
Quarter: 2019Q2

REPORT INFORMATION
  Report Type: Spontaneous
  Country: CN (occurrence: CN)
  Receive Date: 20190621
  Receipt Date: 20190621
  Transmission Date: 20190711
  Serious: Yes (Death, Other)
  Sender: FDA-Public Use
  Company Number: PHHY2019CN140483

PATIENT
  Age: 35 Year
  Sex: Female

DRUGS (1)
  1. PREDNISONE. [Suspect]
     Active Substance: PREDNISONE
     Indication: AUTOIMMUNE HAEMOLYTIC ANAEMIA
     Route: 065

REACTIONS (6)
  - Headache [Unknown]
  - Meningitis cryptococcal [Unknown]
  - Pyrexia [Unknown]
  - Hernia [Fatal]
  - Mental status changes [Unknown]
  - Encephalitis [Unknown]
